FAERS Safety Report 8848715 (Version 1)
Quarter: 2012Q4

REPORT INFORMATION
  Report Type: Spontaneous
  Country: FR (occurrence: None)
  Receive Date: 20121015
  Receipt Date: 20121015
  Transmission Date: 20130627
  Serious: Yes (Other)
  Sender: FDA-Public Use
  Company Number: FR-1194542

PATIENT
  Sex: Female

DRUGS (3)
  1. AZOPT [Suspect]
     Route: 047
  2. PARIET [Concomitant]
  3. SYMBICORT [Concomitant]

REACTIONS (2)
  - Dyspnoea [None]
  - Oropharyngeal pain [None]
